FAERS Safety Report 23756845 (Version 3)
Quarter: 2024Q2

REPORT INFORMATION
  Report Type: Spontaneous
  Country: US (occurrence: None)
  Receive Date: 20240418
  Receipt Date: 20240627
  Transmission Date: 20240716
  Serious: Yes (Hospitalization)
  Sender: FDA-Public Use
  Company Number: 2024A090406

PATIENT
  Sex: Female

DRUGS (2)
  1. SYMLIN [Suspect]
     Active Substance: PRAMLINTIDE ACETATE
     Dosage: 1 MG/2.7 ML
     Route: 058
     Dates: start: 2008
  2. BEVESPI AEROSPHERE [Suspect]
     Active Substance: FORMOTEROL FUMARATE\GLYCOPYRROLATE
     Route: 055

REACTIONS (9)
  - Scratch [Unknown]
  - Cellulitis [Unknown]
  - Blood glucose decreased [Unknown]
  - Injection site haemorrhage [Unknown]
  - Drug hypersensitivity [Unknown]
  - Rash [Unknown]
  - Incorrect dose administered [Unknown]
  - Wrong technique in device usage process [Unknown]
  - Device malfunction [Unknown]
